FAERS Safety Report 24669495 (Version 1)
Quarter: 2024Q4

REPORT INFORMATION
  Report Type: Other
  Country: DE (occurrence: DE)
  Receive Date: 20241127
  Receipt Date: 20241127
  Transmission Date: 20250115
  Serious: Yes (Life-Threatening)
  Sender: VITRUVIAS THERAPEUTICS
  Company Number: DE-Vitruvias Therapeutics-2166060

PATIENT
  Age: 3 Month
  Sex: Male

DRUGS (1)
  1. LIDOCAINE [Suspect]
     Active Substance: LIDOCAINE

REACTIONS (1)
  - Local anaesthetic systemic toxicity [Recovered/Resolved]
